FAERS Safety Report 11279179 (Version 1)
Quarter: 2015Q3

REPORT INFORMATION
  Report Type: Spontaneous
  Country: US (occurrence: None)
  Receive Date: 20150715
  Receipt Date: 20150715
  Transmission Date: 20151125
  Serious: Yes (Death, Hospitalization, Other)
  Sender: FDA-Public Use
  Company Number: ADR-2015-01312

PATIENT
  Age: 50 Year
  Sex: Female

DRUGS (6)
  1. ORAL PAIN MEDICATION [Suspect]
     Active Substance: UNSPECIFIED INGREDIENT
  2. ZOFRAN [Suspect]
     Active Substance: ONDANSETRON HYDROCHLORIDE
  3. CLONIDINE INTRATHECAL 250 MCG/ML [Suspect]
     Active Substance: CLONIDINE
  4. BUPIVACAINE INTRATHECAL [Suspect]
     Active Substance: BUPIVACAINE
  5. COMPOUNDED BACLOFEN INTRATHECAL [Suspect]
     Active Substance: BACLOFEN
     Indication: MUSCLE SPASTICITY
  6. MORPHINE INTRATHECAL [Suspect]
     Active Substance: MORPHINE

REACTIONS (5)
  - Cerebrovascular accident [None]
  - Myocardial infarction [None]
  - Obesity [None]
  - Unresponsive to stimuli [None]
  - Nausea [None]
